FAERS Safety Report 5744093-8 (Version None)
Quarter: 2008Q2

REPORT INFORMATION
  Report Type: 
  Country: None (occurrence: None)
  Receive Date: 20080520
  Receipt Date: 20080515
  Transmission Date: 20081010
  Serious: Yes (Other)
  Sender: FDA-Public Use
  Company Number: A0728108A

PATIENT
  Age: 63 Year
  Sex: Female

DRUGS (3)
  1. RYTHMOL SR [Suspect]
     Indication: ARRHYTHMIA
     Dosage: 325MG TWICE PER DAY
     Route: 048
     Dates: start: 20080429, end: 20080513
  2. DIURETIC [Suspect]
  3. TOPROL-XL [Concomitant]

REACTIONS (5)
  - ABASIA [None]
  - DYSPNOEA [None]
  - MALAISE [None]
  - OEDEMA [None]
  - VISUAL ACUITY REDUCED [None]
